FAERS Safety Report 9299281 (Version 1)
Quarter: 2013Q2

REPORT INFORMATION
  Report Type: Spontaneous
  Country: US (occurrence: US)
  Receive Date: 20130520
  Receipt Date: 20130520
  Transmission Date: 20140414
  Serious: No
  Sender: FDA-Public Use
  Company Number: US-ASTRAZENECA-2013SE23736

PATIENT
  Age: 54 Year
  Sex: Female
  Weight: 141.5 kg

DRUGS (1)
  1. PULMICORT FLEXHALER [Suspect]
     Indication: ASTHMA
     Dosage: 180 MCG, TWO PUFFS BID
     Route: 055
     Dates: start: 2013

REACTIONS (2)
  - Dyspnoea [Unknown]
  - Drug dose omission [Unknown]
